FAERS Safety Report 10756644 (Version 5)
Quarter: 2017Q1

REPORT INFORMATION
  Report Type: Report from Study
  Country: DE (occurrence: DE)
  Receive Date: 20150202
  Receipt Date: 20170329
  Transmission Date: 20170428
  Serious: Yes (Hospitalization, Other)
  Sender: FDA-Public Use
  Company Number: PHHY2015DE012185

PATIENT
  Age: 63 Year
  Sex: Male
  Weight: 91.4 kg

DRUGS (10)
  1. SIGNIFOR [Suspect]
     Active Substance: PASIREOTIDE
     Indication: PITUITARY-DEPENDENT CUSHING^S SYNDROME
     Dosage: 0.6 MG, UNK
     Route: 058
     Dates: start: 20130516
  2. CALCITRAT [Concomitant]
     Indication: OSTEOPENIA
     Dosage: 600 MG, QD
     Route: 065
     Dates: start: 201412
  3. PANTOZOL [Concomitant]
     Active Substance: PANTOPRAZOLE SODIUM
     Indication: PROPHYLAXIS
     Dosage: 40 MG, QD
     Route: 065
     Dates: start: 20130508
  4. LOSARTAN. [Concomitant]
     Active Substance: LOSARTAN
     Indication: HYPERTENSION
     Dosage: 2000 MG, QD
     Route: 065
     Dates: start: 20121002
  5. SIGNIFOR [Suspect]
     Active Substance: PASIREOTIDE
     Dosage: 0.6 MG, BID
     Route: 058
     Dates: start: 20140122
  6. DEKRISTOL [Concomitant]
     Active Substance: CHOLECALCIFEROL
     Indication: OSTEOPENIA
     Dosage: 20000 IU, QW
     Route: 065
     Dates: start: 2014
  7. TESTOVIRON [Concomitant]
     Active Substance: TESTOSTERONE
     Indication: PRIMARY HYPOGONADISM
     Dosage: 250 MG, UNK
     Route: 042
     Dates: start: 200801
  8. HYDROCORTISONE. [Concomitant]
     Active Substance: HYDROCORTISONE
     Indication: ADRENAL INSUFFICIENCY
     Dosage: 10 MG, ON DEMAND
     Route: 065
     Dates: start: 201308
  9. METOHEXAL SUCC [Concomitant]
     Active Substance: METOPROLOL SUCCINATE
     Indication: HYPERTENSION
     Dosage: 190 MG, QD
     Route: 065
     Dates: start: 20131009
  10. SILDENAFIL. [Concomitant]
     Active Substance: SILDENAFIL
     Indication: LIBIDO DECREASED
     Dosage: 100 MG, (ON DEMAND)
     Route: 065
     Dates: start: 201401

REACTIONS (3)
  - Abdominal pain [Recovered/Resolved]
  - Cholelithiasis [Unknown]
  - Cholecystitis acute [Recovered/Resolved]

NARRATIVE: CASE EVENT DATE: 20141231
